FAERS Safety Report 5335191-1 (Version None)
Quarter: 2007Q2

REPORT INFORMATION
  Report Type: 
  Country: None (occurrence: None)
  Receive Date: 20070308
  Receipt Date: 20070111
  Transmission Date: 20071010
  Serious: No
  Sender: FDA-Public Use
  Company Number: 2007-BP-00515BP

PATIENT
  Age: 73 Year
  Sex: Female

DRUGS (7)
  1. SPIRIVA [Suspect]
     Indication: CHRONIC OBSTRUCTIVE PULMONARY DISEASE
     Dosage: 18 MCG I IN I D, IH
     Route: 055
  2. DIGOXIN [Concomitant]
  3. ADVAIR DISKUS 100/50 [Concomitant]
  4. ALBUTEROL [Concomitant]
  5. CARDIZEM [Concomitant]
  6. OXYGEN [Concomitant]
  7. TRUSOPT [Concomitant]

REACTIONS (3)
  - ATRIAL FIBRILLATION [None]
  - DRY MOUTH [None]
  - DRY SKIN [None]
